FAERS Safety Report 19874797 (Version 2)
Quarter: 2022Q2

REPORT INFORMATION
  Report Type: Spontaneous
  Country: US (occurrence: US)
  Receive Date: 20210923
  Receipt Date: 20220414
  Transmission Date: 20220721
  Serious: No
  Sender: FDA-Public Use
  Company Number: US-PFIZER INC-2021486146

PATIENT
  Age: 72 Year
  Sex: Male

DRUGS (3)
  1. XELJANZ XR [Suspect]
     Active Substance: TOFACITINIB CITRATE
     Indication: Rheumatoid arthritis
     Dosage: 11 MG, 1X/DAY
     Route: 048
     Dates: start: 20210426
  2. PREDNISONE [Concomitant]
     Active Substance: PREDNISONE
     Dosage: UNK
  3. SULFASALAZINE [Concomitant]
     Active Substance: SULFASALAZINE
     Dosage: UNK

REACTIONS (12)
  - Product dose omission in error [Unknown]
  - Neutrophil count increased [Unknown]
  - Somnolence [Unknown]
  - Insomnia [Unknown]
  - Memory impairment [Unknown]
  - Arthralgia [Recovering/Resolving]
  - Lymphocyte count decreased [Unknown]
  - Swelling [Unknown]
  - Joint swelling [Unknown]
  - Peripheral swelling [Unknown]
  - Chest pain [Unknown]
  - Dyspnoea [Recovering/Resolving]
